FAERS Safety Report 11250168 (Version 1)
Quarter: 2015Q3

REPORT INFORMATION
  Report Type: Spontaneous
  Country: US (occurrence: US)
  Receive Date: 20150708
  Receipt Date: 20150708
  Transmission Date: 20151125
  Serious: Yes (Other)
  Sender: FDA-Public Use
  Company Number: US-ELI_LILLY_AND_COMPANY-US200705000750

PATIENT
  Age: 60 Year
  Sex: Female

DRUGS (5)
  1. XIGRIS [Suspect]
     Active Substance: DROTRECOGIN ALFA (ACTIVATED)
     Indication: SEPSIS
     Dosage: 24 UNK, EVERY HOUR
     Route: 042
     Dates: start: 20070429, end: 20070502
  2. VANCOMYCIN [Concomitant]
     Active Substance: VANCOMYCIN
  3. INVANZ [Concomitant]
     Active Substance: ERTAPENEM SODIUM
  4. SOLUTIONS FOR PARENTERAL NUTRITION [Concomitant]
     Active Substance: AMINO ACIDS\DEXTROSE\ELECTROLYTES NOS
  5. GENTAMYCIN [Concomitant]
     Active Substance: GENTAMICIN

REACTIONS (1)
  - Disease progression [Unknown]
